FAERS Safety Report 15434067 (Version 1)
Quarter: 2018Q3

REPORT INFORMATION
  Report Type: Spontaneous
  Country: US (occurrence: US)
  Receive Date: 20180927
  Receipt Date: 20180927
  Transmission Date: 20181010
  Serious: No
  Sender: FDA-Public Use
  Company Number: US-GLAXOSMITHKLINE-US2018171455

PATIENT

DRUGS (2)
  1. EXCEDRIN [Suspect]
     Active Substance: ACETAMINOPHEN\ASPIRIN\CAFFEINE
     Dosage: UNK, (3 TO 4)
  2. EXCEDRIN [Suspect]
     Active Substance: ACETAMINOPHEN\ASPIRIN\CAFFEINE
     Indication: MIGRAINE
     Dosage: 2 UNK, UNK

REACTIONS (2)
  - Drug ineffective [Unknown]
  - Extra dose administered [Unknown]
